FAERS Safety Report 15262295 (Version 2)
Quarter: 2020Q1

REPORT INFORMATION
  Report Type: Report from Study
  Country: US (occurrence: US)
  Receive Date: 20180809
  Receipt Date: 20200228
  Transmission Date: 20200409
  Serious: Yes (Hospitalization)
  Sender: FDA-Public Use
  Company Number: US-ACTELION-A-NJ2017-162175

PATIENT
  Age: 28 Year
  Sex: Female

DRUGS (3)
  1. REMODULIN [Concomitant]
     Active Substance: TREPROSTINIL
     Dosage: 90.3 NG/KG, PER MIN
     Route: 042
     Dates: start: 20160429
  2. OPSUMIT [Suspect]
     Active Substance: MACITENTAN
     Indication: PULMONARY ARTERIAL HYPERTENSION
     Dosage: 10 MG, QD
     Route: 048
     Dates: start: 20170217
  3. REMODULIN [Concomitant]
     Active Substance: TREPROSTINIL
     Dosage: 89.1 NG/KG, PER MIN
     Route: 042
     Dates: start: 20161107

REACTIONS (3)
  - Hospitalisation [Unknown]
  - Dehydration [Not Recovered/Not Resolved]
  - Chest pain [Unknown]

NARRATIVE: CASE EVENT DATE: 20171101
